FAERS Safety Report 4705677-9 (Version None)
Quarter: 2005Q2

REPORT INFORMATION
  Report Type: 
  Country: None (occurrence: None)
  Receive Date: 20050629
  Receipt Date: 20050617
  Transmission Date: 20051028
  Serious: Yes (Other)
  Sender: FDA-Public Use
  Company Number: 2005090282

PATIENT
  Sex: Female
  Weight: 61.2356 kg

DRUGS (1)
  1. SUDAFED 12 HOUR [Suspect]
     Indication: MULTIPLE ALLERGIES
     Dosage: ORAL
     Route: 048

REACTIONS (2)
  - BLINDNESS TRANSIENT [None]
  - LOSS OF CONSCIOUSNESS [None]
